FAERS Safety Report 12437863 (Version 1)
Quarter: 2016Q2

REPORT INFORMATION
  Report Type: Spontaneous
  Country: GB (occurrence: GB)
  Receive Date: 20160606
  Receipt Date: 20160606
  Transmission Date: 20160815
  Serious: Yes (Other)
  Sender: FDA-Public Use
  Company Number: GB-009507513-1606GBR001219

PATIENT
  Age: 84 Year
  Sex: Female
  Weight: 63 kg

DRUGS (9)
  1. FERROUS SULFATE. [Concomitant]
     Active Substance: FERROUS SULFATE
     Dosage: 1 DF, QD
     Dates: start: 20160520
  2. HYPROMELLOSE [Concomitant]
     Active Substance: HYPROMELLOSES
     Dosage: APPLY AS DIRECTED AS REQUIRED.
     Dates: start: 20140818
  3. LACIDIPINE [Concomitant]
     Active Substance: LACIDIPINE
     Dosage: 1 DF, BID
     Dates: start: 20150907, end: 20160520
  4. EZETIMIBE. [Suspect]
     Active Substance: EZETIMIBE
     Dosage: UNK
     Dates: start: 20160401
  5. PRAVASTATIN [Concomitant]
     Active Substance: PRAVASTATIN\PRAVASTATIN SODIUM
     Dosage: AT NIGHT
     Dates: start: 20140818, end: 20160401
  6. NORMACOL [Concomitant]
     Active Substance: KARAYA GUM
     Dosage: 10 ML, BID
     Dates: start: 20140818
  7. DILTIAZEM HYDROCHLORIDE. [Concomitant]
     Active Substance: DILTIAZEM HYDROCHLORIDE
     Dosage: 1 DF, BID(ANGITIL AND DILZEM BRANDS)
     Dates: start: 20160422
  8. MAALOX (ALUMINUM HYDROXIDE (+) MAGNESIUM HYDROXIDE) [Concomitant]
     Dosage: 10 ML, QID
     Dates: start: 20140818
  9. RANITIDINE. [Concomitant]
     Active Substance: RANITIDINE
     Dosage: 1 DF, BID
     Dates: start: 20150526

REACTIONS (2)
  - Abdominal pain [Recovered/Resolved]
  - Melaena [Recovered/Resolved]

NARRATIVE: CASE EVENT DATE: 20160509
